FAERS Safety Report 4551588-1 (Version None)
Quarter: 2005Q1

REPORT INFORMATION
  Report Type: 
  Country: None (occurrence: None)
  Receive Date: 20050113
  Receipt Date: 20050106
  Transmission Date: 20050727
  Serious: Yes (Other)
  Sender: FDA-Public Use
  Company Number: GB-BRISTOL-MYERS SQUIBB COMPANY-12815445

PATIENT
  Age: 37 Year
  Sex: Male

DRUGS (4)
  1. DIDANOSINE [Suspect]
  2. TENOFOVIR DF [Suspect]
  3. ZIDOVUDINE [Suspect]
  4. DELAVIRDINE [Suspect]

REACTIONS (4)
  - AMINOACIDURIA [None]
  - FANCONI SYNDROME ACQUIRED [None]
  - GLYCOSURIA [None]
  - STRESS FRACTURE [None]
